FAERS Safety Report 9427208 (Version 1)
Quarter: 2013Q3

REPORT INFORMATION
  Report Type: Spontaneous
  Country: US (occurrence: None)
  Receive Date: 20130729
  Receipt Date: 20130729
  Transmission Date: 20140515
  Serious: No
  Sender: FDA-Public Use
  Company Number: None

PATIENT
  Age: 73 Year
  Sex: Male

DRUGS (3)
  1. WELCHOL (COLESVELAM) [Suspect]
     Indication: BLOOD CHOLESTEROL INCREASED
     Dosage: 3 TABELTES TWICE DAILY
     Dates: start: 20130204
  2. VIAGRA [Concomitant]
  3. COLSEVELAM [Concomitant]

REACTIONS (2)
  - Erectile dysfunction [None]
  - Drug ineffective [None]
